FAERS Safety Report 5083610-0 (Version None)
Quarter: 2006Q3

REPORT INFORMATION
  Report Type: 
  Country: None (occurrence: None)
  Receive Date: 20060818
  Receipt Date: 20060809
  Transmission Date: 20061208
  Serious: Yes (Hospitalization)
  Sender: FDA-Public Use
  Company Number: NL-GLAXOSMITHKLINE-B0434491A

PATIENT
  Age: 38 Year
  Sex: Female

DRUGS (1)
  1. BUPROPION HCL [Suspect]
     Dosage: 150MG UNKNOWN
     Route: 048

REACTIONS (7)
  - CONSTIPATION [None]
  - GASTRIC DISORDER [None]
  - HYPERSENSITIVITY [None]
  - IRRITABLE BOWEL SYNDROME [None]
  - PRURITUS [None]
  - SWELLING [None]
  - WEIGHT INCREASED [None]
